FAERS Safety Report 4990220-X (Version None)
Quarter: 2006Q2

REPORT INFORMATION
  Report Type: 
  Country: None (occurrence: None)
  Receive Date: 20060503
  Receipt Date: 20051220
  Transmission Date: 20061013
  Serious: Yes (Hospitalization)
  Sender: FDA-Public Use
  Company Number: US-MERCK-0512USA03252

PATIENT
  Age: 74 Year
  Sex: Male
  Weight: 100 kg

DRUGS (4)
  1. VIOXX [Suspect]
     Indication: ARTHRITIS
     Route: 048
  2. VIOXX [Suspect]
     Route: 048
  3. DARVOCET [Concomitant]
     Route: 065
  4. PREVACID [Concomitant]
     Route: 065

REACTIONS (30)
  - ASTHENIA [None]
  - ATELECTASIS [None]
  - ATRIAL FIBRILLATION [None]
  - BLOOD PRESSURE ABNORMAL [None]
  - CARDIOVASCULAR DISORDER [None]
  - CEREBROVASCULAR DISORDER [None]
  - DEEP VEIN THROMBOSIS [None]
  - DILATATION ATRIAL [None]
  - DIZZINESS [None]
  - DYSPEPSIA [None]
  - DYSPNOEA [None]
  - ELECTROCARDIOGRAM ST SEGMENT DEPRESSION [None]
  - EMOTIONAL DISTRESS [None]
  - HELICOBACTER PYLORI IDENTIFICATION TEST [None]
  - HELICOBACTER PYLORI IDENTIFICATION TEST POSITIVE [None]
  - INJURY [None]
  - IRON DEFICIENCY ANAEMIA [None]
  - NORMOCHROMIC NORMOCYTIC ANAEMIA [None]
  - OEDEMA [None]
  - OEDEMA PERIPHERAL [None]
  - PNEUMONIA [None]
  - PULMONARY CONGESTION [None]
  - PULMONARY EMBOLISM [None]
  - PULMONARY HYPERTENSION [None]
  - PULMONARY OEDEMA [None]
  - SPINAL OSTEOARTHRITIS [None]
  - SPONDYLITIS [None]
  - SUPRAVENTRICULAR TACHYCARDIA [None]
  - TRICUSPID VALVE INCOMPETENCE [None]
  - ULCER [None]
